FAERS Safety Report 18545662 (Version 1)
Quarter: 2020Q4

REPORT INFORMATION
  Report Type: Spontaneous
  Country: DE (occurrence: DE)
  Receive Date: 20201125
  Receipt Date: 20201125
  Transmission Date: 20210114
  Serious: Yes (Death, Hospitalization, Other)
  Sender: FDA-Public Use
  Company Number: DE-PFIZER INC-2020464301

PATIENT
  Age: 31 Year
  Sex: Female

DRUGS (5)
  1. FASLODEX [Suspect]
     Active Substance: FULVESTRANT
     Indication: OVARIAN CANCER
     Dosage: 500 MG, FREQ:4 WK;
     Route: 030
     Dates: start: 201902, end: 201905
  2. NIVOLUMAB [Concomitant]
     Active Substance: NIVOLUMAB
     Dates: start: 201906, end: 201908
  3. CARBOPLATIN. [Suspect]
     Active Substance: CARBOPLATIN
     Indication: OVARIAN CANCER
     Dates: start: 200901, end: 200906
  4. CARBOPLATIN. [Suspect]
     Active Substance: CARBOPLATIN
     Dosage: UNK
     Dates: start: 201909, end: 201911
  5. ABEMACICLIB [Concomitant]
     Active Substance: ABEMACICLIB
     Dosage: 150 MG, FREQ:12 H;
     Dates: start: 201902, end: 201905

REACTIONS (11)
  - Pneumonia [Fatal]
  - Dyspnoea [Unknown]
  - Achromobacter infection [Unknown]
  - Malignant peritoneal neoplasm [Unknown]
  - Respiratory failure [Fatal]
  - Second primary malignancy [Unknown]
  - Weight increased [Unknown]
  - Erythema [Unknown]
  - Drug hypersensitivity [Unknown]
  - Seroma [Unknown]
  - Neoplasm progression [Unknown]

NARRATIVE: CASE EVENT DATE: 201902
